FAERS Safety Report 6430640-X (Version None)
Quarter: 2009Q4

REPORT INFORMATION
  Report Type: 
  Country: None (occurrence: None)
  Receive Date: 20091106
  Receipt Date: 20091030
  Transmission Date: 20100525
  Serious: Yes (Other)
  Sender: FDA-Public Use
  Company Number: B0597989A

PATIENT
  Sex: Male

DRUGS (2)
  1. RELENZA [Suspect]
     Indication: INFLUENZA
     Dosage: 10MG TWICE PER DAY
     Route: 055
     Dates: start: 20090914, end: 20090918
  2. CALONAL [Concomitant]
     Indication: ANTIPYRESIS
     Dosage: 400MG THREE TIMES PER DAY
     Route: 048
     Dates: start: 20090914, end: 20090918

REACTIONS (5)
  - ANAPHYLACTIC REACTION [None]
  - CHEST PAIN [None]
  - CROUP INFECTIOUS [None]
  - DYSPNOEA [None]
  - URTICARIA [None]
